FAERS Safety Report 12280904 (Version 1)
Quarter: 2016Q2

REPORT INFORMATION
  Report Type: Spontaneous
  Country: GB (occurrence: GB)
  Receive Date: 20160419
  Receipt Date: 20160419
  Transmission Date: 20160815
  Serious: Yes (Other)
  Sender: FDA-Public Use
  Company Number: GB-DEXPHARM-20160726

PATIENT
  Age: 46 Year
  Sex: Female
  Weight: 114.3 kg

DRUGS (2)
  1. OMEPRAZOLE. [Suspect]
     Active Substance: OMEPRAZOLE
     Indication: GASTROOESOPHAGEAL REFLUX DISEASE
     Route: 048
  2. MIRENA [Concomitant]
     Active Substance: LEVONORGESTREL
     Dosage: COIL

REACTIONS (5)
  - Vulvovaginal candidiasis [Not Recovered/Not Resolved]
  - Dizziness [Recovering/Resolving]
  - Swollen tongue [Recovered/Resolved with Sequelae]
  - Diarrhoea [Recovered/Resolved]
  - Dry mouth [Not Recovered/Not Resolved]

NARRATIVE: CASE EVENT DATE: 20160328
